FAERS Safety Report 7480051-3 (Version None)
Quarter: 2011Q2

REPORT INFORMATION
  Report Type: 
  Country: None (occurrence: None)
  Receive Date: 20110516
  Receipt Date: 20110503
  Transmission Date: 20111010
  Serious: No
  Sender: FDA-Public Use
  Company Number: US-BIOGENIDEC-2011BI005812

PATIENT
  Age: 46 Year
  Sex: Female

DRUGS (1)
  1. TYSABRI [Suspect]
     Indication: MULTIPLE SCLEROSIS
     Route: 042
     Dates: start: 20090401

REACTIONS (5)
  - ABDOMINAL DISCOMFORT [None]
  - GALLBLADDER DISORDER [None]
  - URINARY TRACT INFECTION [None]
  - ASTHENIA [None]
  - GASTRIC ULCER [None]
